FAERS Safety Report 4781111-8 (Version None)
Quarter: 2005Q4

REPORT INFORMATION
  Report Type: 
  Country: None (occurrence: None)
  Receive Date: 20050926
  Receipt Date: 20050813
  Transmission Date: 20060501
  Serious: Yes (Other)
  Sender: FDA-Public Use
  Company Number: 2005US000757

PATIENT
  Age: 35 Year
  Sex: Male

DRUGS (15)
  1. AMBISOME [Suspect]
     Indication: MUCORMYCOSIS
     Dosage: 6.00 MG/KG, UID/QD
     Dates: start: 20050509, end: 20050518
  2. AMBISOME [Suspect]
     Indication: MUCORMYCOSIS
     Dosage: 6.00 MG/KG, UID/QD
     Dates: start: 20050525
  3. POSACONAZOLE [Suspect]
     Indication: FUNGAL INFECTION
     Dosage: SEE IMAGE
     Route: 048
     Dates: start: 20050513, end: 20050518
  4. POSACONAZOLE [Suspect]
     Indication: FUNGAL INFECTION
     Dosage: SEE IMAGE
     Route: 048
     Dates: start: 20050531
  5. TRAZODONE HCL [Suspect]
     Indication: DEPRESSION
     Dosage: 100.00 MG
     Dates: start: 20050515, end: 20050515
  6. FLUOXETINE HCL [Suspect]
     Indication: DEPRESSION
     Dosage: 20.00 MG, UID/QD
     Dates: start: 20050426, end: 20050518
  7. ACETAMINOPHEN [Suspect]
     Indication: PYREXIA
     Dosage: PRN, IV NOS
     Route: 042
     Dates: start: 20050503, end: 20050518
  8. GLEEVEC [Suspect]
     Dosage: UNK MG
     Dates: start: 20050504, end: 20050518
  9. OMEPRAZOLE [Suspect]
     Dosage: 20.00 MG
     Dates: start: 20050501
  10. VORICONAZOLE [Concomitant]
  11. CASPOFUNGIN [Concomitant]
  12. VINCRISTINE [Concomitant]
  13. DAUNORUBICIN HCL [Concomitant]
  14. CYTARABINE [Concomitant]
  15. METHOTREXATE [Concomitant]

REACTIONS (28)
  - ABDOMINAL PAIN UPPER [None]
  - CENTRAL NERVOUS SYSTEM INFECTION [None]
  - CEREBRAL DISORDER [None]
  - COLLAPSE OF LUNG [None]
  - DRUG INTERACTION [None]
  - ENDOCARDITIS [None]
  - FUNGAL ENDOCARDITIS [None]
  - FUNGAL INFECTION [None]
  - FUNGAL SKIN INFECTION [None]
  - HEPATITIS TOXIC [None]
  - ILEUS PARALYTIC [None]
  - LUNG INFECTION [None]
  - LUNG INFILTRATION [None]
  - MITRAL VALVE DISEASE [None]
  - MITRAL VALVE INCOMPETENCE [None]
  - MUCORMYCOSIS [None]
  - MYELOPATHY [None]
  - PARAPLEGIA [None]
  - PLEURAL EFFUSION [None]
  - PLEURAL INFECTION [None]
  - POST PROCEDURAL COMPLICATION [None]
  - PROTHROMBIN TIME ABNORMAL [None]
  - SEPTIC EMBOLUS [None]
  - SPINAL DISORDER [None]
  - SPLENIC INFARCTION [None]
  - THYROID NEOPLASM [None]
  - VENOUS THROMBOSIS LIMB [None]
  - VIRAL INFECTION [None]
